FAERS Safety Report 23950496 (Version 2)
Quarter: 2025Q2

REPORT INFORMATION
  Report Type: Spontaneous
  Country: US (occurrence: None)
  Receive Date: 20240607
  Receipt Date: 20250521
  Transmission Date: 20250716
  Serious: No
  Sender: INCYTE
  Company Number: US-INCYTE CORPORATION-2024IN005750

PATIENT
  Age: 62 Year

DRUGS (1)
  1. JAKAFI [Suspect]
     Active Substance: RUXOLITINIB
     Indication: Product used for unknown indication
     Dosage: 10 MILLIGRAM, BID

REACTIONS (6)
  - Red blood cell count increased [Not Recovered/Not Resolved]
  - Candida infection [Unknown]
  - Pain [Unknown]
  - Asthenia [Unknown]
  - Urinary tract infection [Unknown]
  - Nausea [Unknown]
